FAERS Safety Report 19195481 (Version 3)
Quarter: 2021Q2

REPORT INFORMATION
  Report Type: Spontaneous
  Country: JP (occurrence: JP)
  Receive Date: 20210429
  Receipt Date: 20210610
  Transmission Date: 20210717
  Serious: Yes (Other)
  Sender: FDA-Public Use
  Company Number: JP-AMGEN-JPNSP2021065349

PATIENT
  Age: 22 Year
  Sex: Male

DRUGS (4)
  1. PRALIA [Suspect]
     Active Substance: DENOSUMAB
     Dosage: UNK, ONCE EVERY 3 MO
     Route: 065
  2. PRALIA [Suspect]
     Active Substance: DENOSUMAB
     Indication: OSTEOPOROSIS
     Dosage: UNK, ONCE EVERY 6 MO
     Route: 065
  3. PRALIA [Suspect]
     Active Substance: DENOSUMAB
     Dosage: UNK
     Route: 065
  4. PRALIA [Suspect]
     Active Substance: DENOSUMAB
     Dosage: UNK, ONCE EVERY 6 MO
     Route: 065

REACTIONS (5)
  - Abdominal pain [Unknown]
  - Off label use [Unknown]
  - Renal impairment [Recovering/Resolving]
  - Hypercalcaemia [Recovered/Resolved]
  - Nausea [Unknown]
